FAERS Safety Report 4570702-5 (Version None)
Quarter: 2005Q1

REPORT INFORMATION
  Report Type: 
  Country: None (occurrence: None)
  Receive Date: 20050131
  Receipt Date: 20050118
  Transmission Date: 20050727
  Serious: Yes (Other)
  Sender: FDA-Public Use
  Company Number: 2005016291

PATIENT
  Age: 44 Year
  Sex: Female

DRUGS (5)
  1. NEURONTIN [Suspect]
     Indication: FOOT FRACTURE
  2. DIAZEPAM [Suspect]
     Indication: PAIN
  3. IBUPROFEN [Suspect]
     Indication: ARTHRITIS
  4. VICODIN [Suspect]
     Indication: PAIN
  5. CODEINE PHOSPHATE AND ACETAMINOPHEN [Suspect]
     Indication: PAIN

REACTIONS (8)
  - ACTIVITIES OF DAILY LIVING IMPAIRED [None]
  - FOOT FRACTURE [None]
  - INTERVERTEBRAL DISC DEGENERATION [None]
  - MUSCULOSKELETAL STIFFNESS [None]
  - PAIN [None]
  - RHEUMATOID ARTHRITIS [None]
  - SCIATICA [None]
  - SPINAL DISORDER [None]
